FAERS Safety Report 7993424-7 (Version None)
Quarter: 2011Q4

REPORT INFORMATION
  Report Type: 
  Country: None (occurrence: None)
  Receive Date: 20111219
  Receipt Date: 20110923
  Transmission Date: 20120403
  Serious: No
  Sender: FDA-Public Use
  Company Number: US-ASTRAZENECA-2011SE57201

PATIENT
  Age: 71 Year
  Sex: Female

DRUGS (4)
  1. METOPROLOL [Concomitant]
  2. AMBIEN [Concomitant]
  3. CRESTOR [Suspect]
     Indication: BLOOD CHOLESTEROL ABNORMAL
     Route: 048
  4. ESTROGEN MEDICATION [Concomitant]

REACTIONS (1)
  - ALOPECIA [None]
